FAERS Safety Report 7827416-5 (Version None)
Quarter: 2011Q4

REPORT INFORMATION
  Report Type: 
  Country: None (occurrence: None)
  Receive Date: 20111020
  Receipt Date: 20111014
  Transmission Date: 20120403
  Serious: Yes (Hospitalization)
  Sender: FDA-Public Use
  Company Number: JP-JNJFOC-20110910588

PATIENT
  Age: 69 Year
  Sex: Male
  Weight: 42 kg

DRUGS (11)
  1. REMICADE [Suspect]
     Indication: RHEUMATOID ARTHRITIS
     Route: 042
     Dates: start: 20110615
  2. FERRUM [Concomitant]
     Route: 048
  3. CINAL [Concomitant]
     Route: 048
  4. POSTERISAN [Concomitant]
     Route: 050
  5. RHEUMATREX [Suspect]
     Route: 048
     Dates: start: 20110521, end: 20110618
  6. PREDNISOLONE [Concomitant]
     Indication: RHEUMATOID ARTHRITIS
     Route: 048
  7. FOLIC ACID [Concomitant]
     Indication: PROPHYLAXIS
     Route: 048
  8. RABEPRAZOLE SODIUM [Concomitant]
     Indication: GASTROOESOPHAGEAL REFLUX DISEASE
     Route: 048
  9. MUCOSTA [Concomitant]
     Indication: GASTRIC MUCOSAL LESION
     Route: 048
  10. RHEUMATREX [Suspect]
     Indication: RHEUMATOID ARTHRITIS
     Route: 048
     Dates: start: 20101111
  11. CELECOXIB [Concomitant]
     Indication: ARTHRALGIA
     Route: 048

REACTIONS (5)
  - PNEUMOCYSTIS JIROVECI PNEUMONIA [None]
  - THROMBOCYTOPENIA [None]
  - PNEUMONIA [None]
  - PNEUMONIA FUNGAL [None]
  - ASTHENIA [None]
